FAERS Safety Report 24366376 (Version 2)
Quarter: 2024Q4

REPORT INFORMATION
  Report Type: Spontaneous
  Country: US (occurrence: US)
  Receive Date: 20240926
  Receipt Date: 20241004
  Transmission Date: 20250115
  Serious: No
  Sender: ROCHE
  Company Number: US-ROCHE-10000090645

PATIENT
  Age: 64 Year
  Sex: Female

DRUGS (1)
  1. ENSPRYNG [Suspect]
     Active Substance: SATRALIZUMAB-MWGE
     Indication: Neuromyelitis optica spectrum disorder
     Dosage: PT. LAST TOOK DRUG SEPT 13.
     Route: 058
     Dates: start: 20240830

REACTIONS (2)
  - Nausea [Not Recovered/Not Resolved]
  - Arthralgia [Recovered/Resolved]
